FAERS Safety Report 16363811 (Version 2)
Quarter: 2019Q2

REPORT INFORMATION
  Report Type: Spontaneous
  Country: GB (occurrence: GB)
  Receive Date: 20190528
  Receipt Date: 20190603
  Transmission Date: 20190711
  Serious: Yes (Death, Other)
  Sender: FDA-Public Use
  Company Number: GB-SHIRE-GB201916866

PATIENT

DRUGS (2)
  1. RIBAVIRIN. [Suspect]
     Active Substance: RIBAVIRIN
     Indication: LOWER RESPIRATORY TRACT INFECTION
     Dosage: 15-20 MILLIGRAM/KILOGRAM, 1X/DAY:QD
     Route: 048
  2. HUMAN NORMAL IMMUNOGLOBULIN [Suspect]
     Active Substance: HUMAN IMMUNOGLOBULIN G
     Indication: LOWER RESPIRATORY TRACT INFECTION
     Dosage: 2 GRAM PER KILOGRAM OVER 2-4 DAYS
     Route: 042

REACTIONS (1)
  - Drug ineffective for unapproved indication [Fatal]
